FAERS Safety Report 5266465-0 (Version None)
Quarter: 2007Q1

REPORT INFORMATION
  Report Type: 
  Country: None (occurrence: None)
  Receive Date: 20070315
  Receipt Date: 20070307
  Transmission Date: 20070707
  Serious: Yes (Death)
  Sender: FDA-Public Use
  Company Number: GB-BRISTOL-MYERS SQUIBB COMPANY-13714662

PATIENT
  Age: 22 Year
  Sex: Male

DRUGS (6)
  1. CYCLOPHOSPHAMIDE [Suspect]
     Indication: ALLOGENIC BONE MARROW TRANSPLANTATION THERAPY
  2. BUSULFAN [Suspect]
     Indication: ALLOGENIC BONE MARROW TRANSPLANTATION THERAPY
  3. CYCLOSPORINE [Suspect]
     Indication: PROPHYLAXIS
  4. MABCAMPATH [Suspect]
     Indication: ALLOGENIC BONE MARROW TRANSPLANTATION THERAPY
  5. SULFAMETHOXAZOLE [Concomitant]
  6. TRIMETHOPRIM [Concomitant]

REACTIONS (1)
  - CEREBRAL TOXOPLASMOSIS [None]
